FAERS Safety Report 7999702-X (Version None)
Quarter: 2011Q4

REPORT INFORMATION
  Report Type: 
  Country: None (occurrence: None)
  Receive Date: 20111221
  Receipt Date: 20111208
  Transmission Date: 20120403
  Serious: Yes (Other)
  Sender: FDA-Public Use
  Company Number: US-MYLANLABS-2011S1025486

PATIENT
  Age: 2 Year
  Sex: Female

DRUGS (2)
  1. VALPROIC ACID [Suspect]
     Indication: EPILEPSY
     Route: 065
  2. CARBAMAZEPINE [Concomitant]
     Indication: EPILEPSY
     Route: 065

REACTIONS (4)
  - CONDITION AGGRAVATED [None]
  - HYPOTONIA [None]
  - NONKETOTIC HYPERGLYCINAEMIA [None]
  - COMPLEX PARTIAL SEIZURES [None]
